FAERS Safety Report 6639581-6 (Version None)
Quarter: 2010Q1

REPORT INFORMATION
  Report Type: 
  Country: None (occurrence: None)
  Receive Date: 20100318
  Receipt Date: 20100310
  Transmission Date: 20100710
  Serious: Yes (Other)
  Sender: FDA-Public Use
  Company Number: US-JNJFOC-20100302281

PATIENT
  Sex: Female
  Weight: 43.55 kg

DRUGS (1)
  1. DURAGESIC-100 [Suspect]
     Indication: PAIN
     Route: 062

REACTIONS (5)
  - CONVULSION [None]
  - DRUG PRESCRIBING ERROR [None]
  - NASOPHARYNGITIS [None]
  - PAIN [None]
  - PRODUCT ADHESION ISSUE [None]
